FAERS Safety Report 8221627-5 (Version None)
Quarter: 2012Q1

REPORT INFORMATION
  Report Type: 
  Country: None (occurrence: None)
  Receive Date: 20120320
  Receipt Date: 20120316
  Transmission Date: 20120608
  Serious: Yes (Life-Threatening, Hospitalization, Disabling, Other)
  Sender: FDA-Public Use
  Company Number: US-PFIZER INC-2009205363

PATIENT
  Sex: Male
  Weight: 82 kg

DRUGS (1)
  1. CHANTIX [Suspect]
     Indication: SMOKING CESSATION THERAPY
     Dosage: STARTING MONTH PAK, 1 MG TWICE DAILY
     Dates: start: 20080804, end: 20081020

REACTIONS (6)
  - WITHDRAWAL SYNDROME [None]
  - ANGER [None]
  - CARDIAC DISORDER [None]
  - ACUTE MYOCARDIAL INFARCTION [None]
  - WEIGHT INCREASED [None]
  - MOOD SWINGS [None]
